FAERS Safety Report 11539106 (Version 1)
Quarter: 2015Q3

REPORT INFORMATION
  Report Type: Report from Study
  Country: CA (occurrence: CA)
  Receive Date: 20150923
  Receipt Date: 20150923
  Transmission Date: 20151125
  Serious: Yes (Other)
  Sender: FDA-Public Use
  Company Number: CA-ROCHE-1607679

PATIENT
  Age: 70 Year
  Sex: Male

DRUGS (24)
  1. AZITHROMYCIN [Concomitant]
     Active Substance: AZITHROMYCIN ANHYDROUS
  2. PREDNISONE. [Concomitant]
     Active Substance: PREDNISONE
  3. LEVOTHYROXINE. [Concomitant]
     Active Substance: LEVOTHYROXINE
  4. ESBRIET [Suspect]
     Active Substance: PIRFENIDONE
     Dosage: 267MG-534MG-267MG/DAY
     Route: 048
     Dates: start: 20150901
  5. ZOPICLONE [Concomitant]
     Active Substance: ZOPICLONE
  6. COUMADIN [Concomitant]
     Active Substance: WARFARIN SODIUM
  7. ESBRIET [Suspect]
     Active Substance: PIRFENIDONE
     Route: 048
     Dates: start: 20150403
  8. ESBRIET [Suspect]
     Active Substance: PIRFENIDONE
     Dosage: 267MG-534MG-534MG/DAY
     Route: 048
     Dates: start: 20150919
  9. MYCOPHENOLATE SODIUM [Concomitant]
     Active Substance: MYCOPHENOLATE SODIUM
  10. CALCIUM CARBONATE. [Concomitant]
     Active Substance: CALCIUM CARBONATE
  11. NEXIUM [Concomitant]
     Active Substance: ESOMEPRAZOLE MAGNESIUM
  12. ESBRIET [Suspect]
     Active Substance: PIRFENIDONE
     Route: 048
     Dates: start: 20150701
  13. CYCLOSPORINE. [Concomitant]
     Active Substance: CYCLOSPORINE
  14. LIPITOR [Concomitant]
     Active Substance: ATORVASTATIN CALCIUM
  15. ALENDRONATE [Concomitant]
     Active Substance: ALENDRONATE SODIUM
  16. RAMIPRIL. [Concomitant]
     Active Substance: RAMIPRIL
  17. ESBRIET [Suspect]
     Active Substance: PIRFENIDONE
     Indication: IDIOPATHIC PULMONARY FIBROSIS
     Route: 048
     Dates: start: 20150320
  18. ESBRIET [Suspect]
     Active Substance: PIRFENIDONE
     Route: 048
     Dates: start: 20150327
  19. SEPTRA [Concomitant]
     Active Substance: SULFAMETHOXAZOLE\TRIMETHOPRIM
     Dosage: (M/W/F)
     Route: 065
  20. ASA [Concomitant]
     Active Substance: ASPIRIN
     Route: 065
  21. LASIX [Concomitant]
     Active Substance: FUROSEMIDE
  22. HUMULIN - NPH [Concomitant]
     Dosage: BID
     Route: 065
  23. PLAVIX [Concomitant]
     Active Substance: CLOPIDOGREL BISULFATE
  24. MAGNESIUM OXIDE. [Concomitant]
     Active Substance: MAGNESIUM OXIDE

REACTIONS (9)
  - Fatigue [Not Recovered/Not Resolved]
  - Dizziness [Not Recovered/Not Resolved]
  - Vision blurred [Not Recovered/Not Resolved]
  - Poor quality sleep [Unknown]
  - Blood urine present [Unknown]
  - Ageusia [Not Recovered/Not Resolved]
  - Dyspnoea [Not Recovered/Not Resolved]
  - Asthenia [Recovering/Resolving]
  - Head discomfort [Not Recovered/Not Resolved]

NARRATIVE: CASE EVENT DATE: 20150327
